FAERS Safety Report 5849430-1 (Version None)
Quarter: 2008Q3

REPORT INFORMATION
  Report Type: 
  Country: None (occurrence: None)
  Receive Date: 20080815
  Receipt Date: 20080811
  Transmission Date: 20090109
  Serious: Yes (Death)
  Sender: FDA-Public Use
  Company Number: URSO-2008-093

PATIENT
  Sex: Female

DRUGS (4)
  1. URSO 250 [Suspect]
     Indication: BILIARY CIRRHOSIS PRIMARY
     Dosage: 600 MG/DAY ORAL
     Route: 048
     Dates: start: 20040617
  2. LASIX [Concomitant]
  3. PARIET (SODIUM RABEPROZOLE) [Concomitant]
  4. ALDACTONE [Concomitant]

REACTIONS (1)
  - DEATH [None]
